FAERS Safety Report 16308781 (Version 2)
Quarter: 2019Q2

REPORT INFORMATION
  Report Type: Spontaneous
  Country: US (occurrence: US)
  Receive Date: 20190514
  Receipt Date: 20190618
  Transmission Date: 20190711
  Serious: No
  Sender: FDA-Public Use
  Company Number: US-PFIZER INC-2019196723

PATIENT
  Age: 66 Year
  Sex: Female
  Weight: 65 kg

DRUGS (12)
  1. DULOXETINE. [Concomitant]
     Active Substance: DULOXETINE
     Dosage: 30 MG, 2X/DAY [TWICE A DAY (MORNING AND NIGHT) ]
     Route: 048
  2. AMLODIPINE BESYLATE. [Concomitant]
     Active Substance: AMLODIPINE BESYLATE
     Indication: HYPERTENSION
     Dosage: UNK UNK, 1X/DAY [ONE AND HALF TABLET BY MOUTH ]
     Route: 048
  3. LORAZEPAM. [Concomitant]
     Active Substance: LORAZEPAM
     Dosage: 0.5 MG, 2X/DAY [TWICE A DAY (MORNING AND NIGHT)]
     Route: 048
  4. ALENDRONATE SODIUM. [Concomitant]
     Active Substance: ALENDRONATE SODIUM
     Dosage: 35 MG, WEEKLY [ONE TABLET BY MOUTH EVERY 7 DAYS WITH GLASS OF WATER ]
     Route: 048
  5. CELEBREX [Suspect]
     Active Substance: CELECOXIB
     Indication: BACK PAIN
  6. MONTELUKAST [Concomitant]
     Active Substance: MONTELUKAST SODIUM
     Indication: HYPERSENSITIVITY
     Dosage: 10 MG, UNK
  7. RANITIDINE. [Concomitant]
     Active Substance: RANITIDINE
     Indication: GASTROOESOPHAGEAL REFLUX DISEASE
     Dosage: 150 MG, AS NEEDED [TWICE A DAY, IF NEEDED ]
  8. ATORVASTATIN [Concomitant]
     Active Substance: ATORVASTATIN
     Indication: BLOOD CHOLESTEROL INCREASED
     Dosage: 20 MG, DAILY
     Route: 048
  9. ASPIRIN 81 [Concomitant]
     Active Substance: ASPIRIN
     Dosage: 81 MG, UNK
  10. CELEBREX [Suspect]
     Active Substance: CELECOXIB
     Indication: ARTHRITIS
     Dosage: 200 MG, DAILY (ONE CAPSULE BY MOUTH EVERY DAY, 200 MG)
     Route: 048
  11. CELEBREX [Suspect]
     Active Substance: CELECOXIB
     Indication: ARTHRALGIA
  12. LOSARTAN. [Concomitant]
     Active Substance: LOSARTAN
     Dosage: 25 MG, DAILY

REACTIONS (3)
  - Extra dose administered [Unknown]
  - Heart rate increased [Unknown]
  - Nervousness [Unknown]
